FAERS Safety Report 13075943 (Version 1)
Quarter: 2016Q4

REPORT INFORMATION
  Report Type: Spontaneous
  Country: FR (occurrence: FR)
  Receive Date: 20161230
  Receipt Date: 20161230
  Transmission Date: 20170207
  Serious: Yes (Hospitalization, Other)
  Sender: FDA-Public Use
  Company Number: FR-BRISTOL-MYERS SQUIBB COMPANY-BMS-2016-110159

PATIENT
  Age: 74 Year
  Sex: Female

DRUGS (1)
  1. OPDIVO [Suspect]
     Active Substance: NIVOLUMAB
     Indication: LUNG ADENOCARCINOMA
     Dosage: 220 MG, UNK
     Route: 042
     Dates: start: 20150812

REACTIONS (8)
  - Pulmonary embolism [Recovered/Resolved]
  - Malaise [Recovered/Resolved]
  - Fall [Unknown]
  - Somnolence [Unknown]
  - Pyrexia [Recovering/Resolving]
  - Clonus [Recovered/Resolved]
  - Loss of consciousness [Recovered/Resolved]
  - Productive cough [Recovering/Resolving]

NARRATIVE: CASE EVENT DATE: 20160124
